FAERS Safety Report 6251126-1 (Version None)
Quarter: 2009Q2

REPORT INFORMATION
  Report Type: 
  Country: None (occurrence: None)
  Receive Date: 20090630
  Receipt Date: 20090410
  Transmission Date: 20091009
  Serious: No
  Sender: FDA-Public Use
  Company Number: US-ABBOTT-09P-163-0567843-00

PATIENT
  Sex: Female

DRUGS (2)
  1. ZEMPLAR [Suspect]
     Indication: HYPERPARATHYROIDISM
     Dosage: INCREASED TO 4 IN 1 WEEK
  2. ZEMPLAR [Suspect]
     Dates: start: 20080901

REACTIONS (2)
  - ARTHRALGIA [None]
  - PALPITATIONS [None]
